FAERS Safety Report 9734177 (Version 1)
Quarter: 2013Q4

REPORT INFORMATION
  Report Type: Spontaneous
  Country: GB (occurrence: GB)
  Receive Date: 20131205
  Receipt Date: 20131205
  Transmission Date: 20140711
  Serious: Yes (Death)
  Sender: FDA-Public Use
  Company Number: GB-WATSON-2013-22280

PATIENT
  Sex: 0

DRUGS (1)
  1. FENTANYL (UNKNOWN) [Suspect]
     Indication: PRODUCT USED FOR UNKNOWN INDICATION
     Dosage: UNK
     Route: 065
     Dates: start: 20120908, end: 20120908

REACTIONS (2)
  - Death [Fatal]
  - Drug abuse [Fatal]
